FAERS Safety Report 5472551-2 (Version None)
Quarter: 2007Q3

REPORT INFORMATION
  Report Type: 
  Country: None (occurrence: None)
  Receive Date: 20070927
  Receipt Date: 20070917
  Transmission Date: 20080115
  Serious: Yes (Death)
  Sender: FDA-Public Use
  Company Number: B0488153A

PATIENT
  Sex: 0

DRUGS (2)
  1. TOPOTECAN HYDROCHLORIDE INJECTION (GENERIC) (TOPOTECAN) [Suspect]
     Indication: SMALL CELL LUNG CANCER STAGE UNSPECIFIED
     Dosage: 1 MG/M2/CYCLIC/INTRAVENOUS
     Route: 042
  2. ETOPOSIDE [Suspect]
     Indication: SMALL CELL LUNG CANCER STAGE UNSPECIFIED
     Dosage: 80 MG/M2/CYCLIC/INTRAVENOUS
     Route: 042

REACTIONS (1)
  - PNEUMONIA [None]
